FAERS Safety Report 7705944-0 (Version None)
Quarter: 2011Q3

REPORT INFORMATION
  Report Type: 
  Country: None (occurrence: None)
  Receive Date: 20110818
  Receipt Date: 20110804
  Transmission Date: 20111222
  Serious: Yes (Other)
  Sender: FDA-Public Use
  Company Number: 2009EN000025

PATIENT
  Sex: Female

DRUGS (1)
  1. ADAGEN [Suspect]
     Indication: COMBINED IMMUNODEFICIENCY
     Dosage: 20 IU/KG; QW; IM
     Route: 030
     Dates: start: 20020723, end: 20020927

REACTIONS (7)
  - CANDIDIASIS [None]
  - PNEUMONIA STAPHYLOCOCCAL [None]
  - VARICELLA [None]
  - ALLOGENIC BONE MARROW TRANSPLANTATION THERAPY [None]
  - ORAL CANDIDIASIS [None]
  - FAILURE TO THRIVE [None]
  - DIARRHOEA [None]
